FAERS Safety Report 11657869 (Version 3)
Quarter: 2015Q4

REPORT INFORMATION
  Report Type: Spontaneous
  Country: KR (occurrence: KR)
  Receive Date: 20151023
  Receipt Date: 20151027
  Transmission Date: 20160304
  Serious: Yes (Other)
  Sender: FDA-Public Use
  Company Number: KR-BAXTER-2015BAX057662

PATIENT

DRUGS (1)
  1. HEMOSOL BO [Suspect]
     Active Substance: BICARBONATE ION\CALCIUM CATION\LACTIC ACID\MAGNESIUM CATION\SODIUM CHLORIDE
     Indication: HAEMODIALYSIS
     Route: 010

REACTIONS (1)
  - Haemorrhage [Unknown]

NARRATIVE: CASE EVENT DATE: 20151017
